FAERS Safety Report 21051934 (Version 1)
Quarter: 2022Q3

REPORT INFORMATION
  Report Type: Spontaneous
  Country: HR (occurrence: HR)
  Receive Date: 20220707
  Receipt Date: 20220707
  Transmission Date: 20221027
  Serious: Yes (Other)
  Sender: FDA-Public Use
  Company Number: None

PATIENT
  Age: 15 Year
  Sex: Female

DRUGS (5)
  1. IBUPROFEN [Suspect]
     Active Substance: IBUPROFEN
     Indication: Product used for unknown indication
     Dosage: 4 GRAM, QD (10 TABLETS.X400MG)
     Route: 048
     Dates: start: 20220531, end: 20220531
  2. ACETAMINOPHEN [Suspect]
     Active Substance: ACETAMINOPHEN
     Indication: Product used for unknown indication
     Dosage: 14 GRAM, QD (28 TABLETSX500MG)
     Route: 048
     Dates: start: 20220531, end: 20220531
  3. ANDOL [Suspect]
     Active Substance: ASPIRIN
     Indication: Product used for unknown indication
     Dosage: 1 GRAM, QD (10 TABLETS .X100MG)
     Route: 048
     Dates: start: 20220531, end: 20220531
  4. LAMICTAL [Suspect]
     Active Substance: LAMOTRIGINE
     Indication: Product used for unknown indication
     Dosage: 28 DOSAGE FORM, QD (DF-1 TABLET)
     Route: 048
     Dates: start: 20220531, end: 20220531
  5. QUETIAPINE FUMARATE [Suspect]
     Active Substance: QUETIAPINE FUMARATE
     Indication: Product used for unknown indication
     Dosage: 90 DOSAGE FORM, QD (DF-1 TABLET)
     Route: 048
     Dates: start: 20220531, end: 20220531

REACTIONS (4)
  - Suicide attempt [Unknown]
  - Somnolence [Unknown]
  - Depressed mood [Unknown]
  - Intentional overdose [Unknown]

NARRATIVE: CASE EVENT DATE: 20220531
